FAERS Safety Report 17387277 (Version 1)
Quarter: 2020Q1

REPORT INFORMATION
  Report Type: Spontaneous
  Country: US (occurrence: US)
  Receive Date: 20200122
  Receipt Date: 20200122
  Transmission Date: 20200409
  Serious: Yes (Hospitalization)
  Sender: FDA-Public Use
  Company Number: None

PATIENT
  Age: 61 Year
  Sex: Female
  Weight: 101 kg

DRUGS (1)
  1. CYTARABINE. [Suspect]
     Active Substance: CYTARABINE
     Dates: end: 20200102

REACTIONS (4)
  - Visual impairment [None]
  - Nervous system disorder [None]
  - Hypertension [None]
  - Sensory disturbance [None]

NARRATIVE: CASE EVENT DATE: 20200117
